FAERS Safety Report 4715605-8 (Version None)
Quarter: 2005Q3

REPORT INFORMATION
  Report Type: 
  Country: None (occurrence: None)
  Receive Date: 20050713
  Receipt Date: 20050324
  Transmission Date: 20060218
  Serious: Yes (Life-Threatening, Hospitalization)
  Sender: FDA-Public Use
  Company Number: 2005FR-00088

PATIENT
  Sex: Female

DRUGS (7)
  1. ASPIRIN [Suspect]
     Dosage: 75 MG, OD, ORAL
     Route: 048
     Dates: start: 20031104, end: 20031118
  2. DICLOFENAC SODIUM [Concomitant]
  3. SERETIODE [Concomitant]
  4. ALBUTEROL SULFATE HFA [Concomitant]
  5. DOXYCYCLINE [Concomitant]
  6. LEVOFLOXACIN [Concomitant]
  7. PREDNISOLONE [Concomitant]

REACTIONS (6)
  - ABDOMINAL PAIN UPPER [None]
  - DUODENAL ULCER [None]
  - GASTRIC ULCER [None]
  - MELAENA [None]
  - NAUSEA [None]
  - OESOPHAGITIS [None]
